FAERS Safety Report 8435298-6 (Version None)
Quarter: 2012Q2

REPORT INFORMATION
  Report Type: 
  Country: None (occurrence: None)
  Receive Date: 20120608
  Receipt Date: 20120525
  Transmission Date: 20120825
  Serious: Yes (Other)
  Sender: FDA-Public Use
  Company Number: 2012SP029208

PATIENT
  Age: 66 Year
  Sex: Male

DRUGS (6)
  1. ELOCON [Suspect]
     Indication: ECZEMA
     Dates: start: 20120523
  2. REYATAZ [Concomitant]
  3. MARAVIROC [Concomitant]
  4. RALTEGRAVIR [Concomitant]
  5. ATAZANAVIR [Concomitant]
  6. ABACAVIR SULFATE/LAMIVUDINE [Concomitant]

REACTIONS (7)
  - FEELING HOT [None]
  - LOSS OF LIBIDO [None]
  - BURNING SENSATION [None]
  - EYE PRURITUS [None]
  - PARAESTHESIA [None]
  - ERECTILE DYSFUNCTION [None]
  - UNEVALUABLE EVENT [None]
